FAERS Safety Report 18486682 (Version 1)
Quarter: 2020Q4

REPORT INFORMATION
  Report Type: Spontaneous
  Country: ES (occurrence: ES)
  Receive Date: 20201110
  Receipt Date: 20201110
  Transmission Date: 20210114
  Serious: Yes (Other)
  Sender: FDA-Public Use
  Company Number: ES-BAYER-2020-233884

PATIENT
  Age: 54 Year
  Sex: Female

DRUGS (4)
  1. ESCITALOPRAM STADA [Concomitant]
     Active Substance: ESCITALOPRAM OXALATE
     Dosage: 1-0-0
     Route: 048
     Dates: start: 20190305
  2. ACTIRA [Suspect]
     Active Substance: MOXIFLOXACIN HYDROCHLORIDE
     Indication: CHRONIC SINUSITIS
     Dosage: 400 MG, QD
     Route: 048
     Dates: start: 20200210, end: 20200214
  3. ALPRAZOLAM STADA [Concomitant]
     Dosage: 1-0-1
     Route: 048
     Dates: start: 20190305
  4. SEDOTIME [Concomitant]
     Active Substance: KETAZOLAM
     Dosage: UNK
     Route: 048
     Dates: start: 20190305

REACTIONS (4)
  - Spider vein [Recovered/Resolved with Sequelae]
  - Hypothermia [Recovered/Resolved]
  - Visual impairment [Recovered/Resolved]
  - Headache [Recovered/Resolved]

NARRATIVE: CASE EVENT DATE: 20200210
